FAERS Safety Report 7327815-4 (Version None)
Quarter: 2011Q1

REPORT INFORMATION
  Report Type: 
  Country: None (occurrence: None)
  Receive Date: 20110303
  Receipt Date: 20110224
  Transmission Date: 20110831
  Serious: Yes (Other)
  Sender: FDA-Public Use
  Company Number: US-PFIZER INC-2010153425

PATIENT
  Sex: Female

DRUGS (5)
  1. FOSAMAX [Concomitant]
     Indication: OSTEOPENIA
     Dosage: UNK
     Dates: start: 20040101, end: 20090101
  2. ACETYLSALICYLIC ACID [Concomitant]
     Indication: PAIN
     Dosage: UNK
     Dates: start: 20040101
  3. ACETYLSALICYLIC ACID [Concomitant]
     Indication: EYE DISORDER
  4. CHANTIX [Suspect]
     Indication: SMOKING CESSATION THERAPY
     Dosage: STARTING PACK, 1MG CONTINUING MONTH PACK
     Dates: start: 20070322, end: 20070723
  5. IMITREX [Concomitant]
     Indication: MIGRAINE
     Dosage: UNK
     Dates: start: 20010101

REACTIONS (9)
  - ANXIETY [None]
  - DEPRESSION [None]
  - ANGER [None]
  - HOMICIDAL IDEATION [None]
  - MOOD SWINGS [None]
  - NIGHTMARE [None]
  - SUICIDAL IDEATION [None]
  - IRRITABILITY [None]
  - INSOMNIA [None]
